FAERS Safety Report 7240583-X (Version None)
Quarter: 2011Q1

REPORT INFORMATION
  Report Type: 
  Country: None (occurrence: None)
  Receive Date: 20110118
  Receipt Date: 20110107
  Transmission Date: 20110831
  Serious: Yes (Life-Threatening, Hospitalization)
  Sender: FDA-Public Use
  Company Number: DSA_44634_2011

PATIENT
  Age: 11 Month
  Sex: Male
  Weight: 12 kg

DRUGS (1)
  1. BUPROPION SUSTAINED RELEASE 300 MG [Suspect]
     Indication: PRODUCT USED FOR UNKNOWN INDICATION
     Dosage: 9000 MG 1X, ORAL
     Route: 048

REACTIONS (18)
  - BALANCE DISORDER [None]
  - VENTRICULAR TACHYCARDIA [None]
  - RESPIRATORY FAILURE [None]
  - GRAND MAL CONVULSION [None]
  - SINUS TACHYCARDIA [None]
  - LUNG INFILTRATION [None]
  - METABOLIC ACIDOSIS [None]
  - PUPIL FIXED [None]
  - HYPERGLYCAEMIA [None]
  - ASPIRATION [None]
  - MEDICATION RESIDUE [None]
  - OVERDOSE [None]
  - DEPRESSED LEVEL OF CONSCIOUSNESS [None]
  - VENTRICULAR EXTRASYSTOLES [None]
  - HYPOTENSION [None]
  - ACCIDENTAL DRUG INTAKE BY CHILD [None]
  - BLOOD PRESSURE SYSTOLIC INCREASED [None]
  - ELECTROCARDIOGRAM ABNORMAL [None]
